FAERS Safety Report 6580333-3 (Version None)
Quarter: 2010Q1

REPORT INFORMATION
  Report Type: 
  Country: None (occurrence: None)
  Receive Date: 20100212
  Receipt Date: 20100104
  Transmission Date: 20100710
  Serious: No
  Sender: FDA-Public Use
  Company Number: US-ALLERGAN-1000076US

PATIENT
  Age: 82 Year
  Sex: Female

DRUGS (3)
  1. COMBIGAN [Suspect]
     Indication: GLAUCOMA
     Dosage: UNK
     Route: 047
     Dates: start: 20090201
  2. AZOPT [Concomitant]
     Indication: GLAUCOMA
  3. LUMIGAN [Concomitant]
     Indication: GLAUCOMA

REACTIONS (3)
  - INFLUENZA LIKE ILLNESS [None]
  - NASOPHARYNGITIS [None]
  - VISUAL FIELD DEFECT [None]
